FAERS Safety Report 15028131 (Version 4)
Quarter: 2022Q1

REPORT INFORMATION
  Report Type: Spontaneous
  Country: PL (occurrence: PL)
  Receive Date: 20180619
  Receipt Date: 20220201
  Transmission Date: 20220423
  Serious: Yes (Death, Life-Threatening, Hospitalization, Other)
  Sender: FDA-Public Use
  Company Number: None

PATIENT
  Age: 14 Year
  Sex: Female

DRUGS (9)
  1. ETOPOSIDE [Suspect]
     Active Substance: ETOPOSIDE
     Indication: Extra-osseous Ewing^s sarcoma
     Dosage: UNK (VIDE REGIMEN) (CEVAIE CHEMOTHERAPY)
     Route: 065
  2. CARBOPLATIN [Suspect]
     Active Substance: CARBOPLATIN
     Indication: Extra-osseous Ewing^s sarcoma
     Dosage: UNK (CEVAIE CHEMOTHERAPY)
     Route: 065
  3. EPIRUBICIN [Suspect]
     Active Substance: EPIRUBICIN
     Indication: Extra-osseous Ewing^s sarcoma
     Dosage: UNK (CEVAIE CHEMOTHERAPY)
     Route: 065
  4. DOXORUBICIN [Suspect]
     Active Substance: DOXORUBICIN
     Indication: Extra-osseous Ewing^s sarcoma
     Dosage: UNK (VIDE REGIMEN)
     Route: 065
  5. TEMOZOLOMIDE [Suspect]
     Active Substance: TEMOZOLOMIDE
     Indication: Extra-osseous Ewing^s sarcoma
     Dosage: UNK
     Route: 065
  6. VINCRISTINE [Suspect]
     Active Substance: VINCRISTINE
     Indication: Extra-osseous Ewing^s sarcoma
     Dosage: UNK(VIDE REGIMEN) (CEVAIE CHEMOTHERAPY) (VAI)
     Route: 065
  7. IFOSFAMIDE [Suspect]
     Active Substance: IFOSFAMIDE
     Indication: Extra-osseous Ewing^s sarcoma
     Dosage: UNK (VAI) (VIDE REGIMEN) (CEVAIE CHEMOTHERAPY)
     Route: 065
  8. IRINOTECAN [Suspect]
     Active Substance: IRINOTECAN
     Indication: Extra-osseous Ewing^s sarcoma
     Dosage: UNK
     Route: 065
  9. CACTINOMYCIN [Suspect]
     Active Substance: CACTINOMYCIN
     Indication: Extra-osseous Ewing^s sarcoma
     Dosage: UNK (VAI) (CEVAIE CHEMOTHERAPY)
     Route: 065

REACTIONS (9)
  - Systemic candida [Fatal]
  - Drug ineffective [Fatal]
  - Oesophageal hypomotility [Unknown]
  - Febrile neutropenia [Not Recovered/Not Resolved]
  - Vomiting [Unknown]
  - Neutropenia [Not Recovered/Not Resolved]
  - Myelosuppression [Unknown]
  - Gastrointestinal toxicity [Unknown]
  - Gastrointestinal disorder [Unknown]
